FAERS Safety Report 6969504-1 (Version None)
Quarter: 2010Q3

REPORT INFORMATION
  Report Type: 
  Country: None (occurrence: None)
  Receive Date: 20100907
  Receipt Date: 20100907
  Transmission Date: 20110219
  Serious: No
  Sender: FDA-Public Use
  Company Number: None

PATIENT
  Sex: Male
  Weight: 94.9 kg

DRUGS (5)
  1. METHOTREXATE [Suspect]
  2. MERCAPTOPURINE [Suspect]
  3. ACTIGALL [Concomitant]
  4. NEXIUM [Concomitant]
  5. DAPSONE [Concomitant]

REACTIONS (2)
  - HEPATIC CIRRHOSIS [None]
  - HEPATITIS [None]
